FAERS Safety Report 14293033 (Version 1)
Quarter: 2017Q4

REPORT INFORMATION
  Report Type: Report from Study
  Country: US (occurrence: US)
  Receive Date: 20171215
  Receipt Date: 20171215
  Transmission Date: 20180321
  Serious: Yes (Other)
  Sender: FDA-Public Use
  Company Number: US-TEVA-2017-US-832971

PATIENT
  Age: 55 Year
  Sex: Female

DRUGS (2)
  1. COPAXONE [Suspect]
     Active Substance: GLATIRAMER ACETATE
     Indication: MULTIPLE SCLEROSIS
     Route: 058
     Dates: start: 20150324
  2. COPAXONE [Suspect]
     Active Substance: GLATIRAMER ACETATE
     Dates: start: 20031205

REACTIONS (7)
  - Loss of consciousness [Unknown]
  - Freezing phenomenon [Unknown]
  - Visual impairment [Recovering/Resolving]
  - Pain [Recovered/Resolved]
  - Nasopharyngitis [Unknown]
  - Balance disorder [Recovering/Resolving]
  - Flushing [Unknown]

NARRATIVE: CASE EVENT DATE: 20171203
